FAERS Safety Report 5593894-8 (Version None)
Quarter: 2007Q4

REPORT INFORMATION
  Report Type: 
  Country: None (occurrence: None)
  Receive Date: 20071218
  Receipt Date: 20070402
  Transmission Date: 20080405
  Serious: Yes (Other)
  Sender: FDA-Public Use
  Company Number: 2007000992

PATIENT
  Age: 47 Year
  Sex: Male
  Weight: 120.2 kg

DRUGS (1)
  1. BEXTRA [Suspect]
     Indication: ARTHRITIS
     Dosage: (2 IN 1 D)
     Dates: start: 20031001

REACTIONS (3)
  - MAJOR DEPRESSION [None]
  - MYOCARDIAL INFARCTION [None]
  - SOCIAL PHOBIA [None]
